FAERS Safety Report 9646933 (Version 2)
Quarter: 2013Q4

REPORT INFORMATION
  Report Type: Spontaneous
  Country: US (occurrence: US)
  Receive Date: 20131027
  Receipt Date: 20131027
  Transmission Date: 20140711
  Serious: No
  Sender: FDA-Public Use
  Company Number: US-PURDUE-USA-2013-0101167

PATIENT
  Sex: Female

DRUGS (2)
  1. OXYCONTIN (NDA 22-272) [Suspect]
     Indication: PAIN
     Dosage: 240 MG, BID
     Route: 048
  2. OXYCODONE HYDROCHLORIDE (SIMILAR TO NDA 22-272) [Concomitant]
     Indication: BREAKTHROUGH PAIN
     Dosage: 30 MG, (5 TABLETS AT 8AM, 4 TABLETS AT NOON, 4 TABLETS AT 4PM)
     Route: 048

REACTIONS (2)
  - Wrong technique in drug usage process [Unknown]
  - Drug ineffective [Recovered/Resolved]
